FAERS Safety Report 4603424-2 (Version None)
Quarter: 2005Q1

REPORT INFORMATION
  Report Type: 
  Country: None (occurrence: None)
  Receive Date: 20050309
  Receipt Date: 20050302
  Transmission Date: 20050727
  Serious: Yes (Hospitalization, Disabling)
  Sender: FDA-Public Use
  Company Number: US-MERCK-0503USA00379

PATIENT
  Sex: Female

DRUGS (1)
  1. VIOXX [Suspect]
     Route: 048

REACTIONS (3)
  - CARDIAC DISORDER [None]
  - INJURY [None]
  - MYOCARDIAL INFARCTION [None]
